FAERS Safety Report 6035759-3 (Version None)
Quarter: 2009Q1

REPORT INFORMATION
  Report Type: 
  Country: None (occurrence: None)
  Receive Date: 20090113
  Receipt Date: 20081229
  Transmission Date: 20090719
  Serious: Yes (Other)
  Sender: FDA-Public Use
  Company Number: ES-ELI_LILLY_AND_COMPANY-ES200810006856

PATIENT
  Age: 58 Year
  Sex: Female
  Weight: 50 kg

DRUGS (6)
  1. FORTEO [Suspect]
     Indication: OSTEOPOROSIS
     Dosage: 20 UG, UNKNOWN
     Route: 058
     Dates: start: 20080401, end: 20081101
  2. ARCOXIA [Concomitant]
     Dosage: UNK, UNKNOWN
     Route: 065
  3. LYRICA [Concomitant]
     Dosage: 75 MG, UNKNOWN
     Route: 065
  4. ANALGESIC                          /00735901/ [Concomitant]
     Indication: PAIN
     Dosage: UNK, UNKNOWN
     Route: 065
  5. VARIDASA [Concomitant]
     Indication: PHARYNGITIS
     Dosage: UNK, UNKNOWN
     Route: 065
  6. ANTIINFLAMMATORY/ANTIRHEUMATIC PRODUCTS [Concomitant]
     Indication: PHARYNGITIS
     Dosage: UNK, UNKNOWN
     Route: 065

REACTIONS (8)
  - ANXIETY [None]
  - APHONIA [None]
  - DEPRESSION [None]
  - NAUSEA [None]
  - NERVOUSNESS [None]
  - PHARYNGITIS [None]
  - SALIVARY GLAND CALCULUS [None]
  - TACHYCARDIA [None]
